FAERS Safety Report 24947890 (Version 1)
Quarter: 2025Q1

REPORT INFORMATION
  Report Type: Report from Study
  Country: US (occurrence: US)
  Receive Date: 20250210
  Receipt Date: 20250210
  Transmission Date: 20250409
  Serious: Yes (Other)
  Sender: ABBVIE
  Company Number: US-ABBVIE-6122456

PATIENT
  Age: 64 Year
  Sex: Male

DRUGS (1)
  1. HUMIRA [Suspect]
     Active Substance: ADALIMUMAB
     Indication: Psoriatic arthropathy
     Route: 058
     Dates: start: 20241202, end: 20250113

REACTIONS (3)
  - Nephrolithiasis [Recovered/Resolved]
  - Sepsis [Recovering/Resolving]
  - Kidney infection [Recovering/Resolving]

NARRATIVE: CASE EVENT DATE: 20250124
